FAERS Safety Report 17549659 (Version 1)
Quarter: 2020Q1

REPORT INFORMATION
  Report Type: Spontaneous
  Country: FR (occurrence: FR)
  Receive Date: 20200317
  Receipt Date: 20200317
  Transmission Date: 20200409
  Serious: Yes (Life-Threatening)
  Sender: FDA-Public Use
  Company Number: NVSC2020FR074510

PATIENT
  Age: 91 Year
  Sex: Female
  Weight: 54 kg

DRUGS (8)
  1. OMEPRAZOLE. [Suspect]
     Active Substance: OMEPRAZOLE
     Indication: PRODUCT USED FOR UNKNOWN INDICATION
     Dosage: UNK
     Route: 048
  2. ACTISKENAN [Suspect]
     Active Substance: MORPHINE SULFATE
     Indication: GAIT DISTURBANCE
     Dosage: UNK
     Route: 048
  3. FUROSEMIDE. [Suspect]
     Active Substance: FUROSEMIDE
     Indication: HYPERTENSION
     Dosage: 20 MG
     Route: 048
  4. PREGABALIN. [Suspect]
     Active Substance: PREGABALIN
     Indication: GAIT DISTURBANCE
     Dosage: 100 MG
     Route: 048
     Dates: start: 20191128, end: 20191206
  5. IRBESARTAN. [Suspect]
     Active Substance: IRBESARTAN
     Indication: HYPERTENSION
     Dosage: 300 MG
     Route: 048
  6. RIVOTRIL [Suspect]
     Active Substance: CLONAZEPAM
     Indication: GAIT DISTURBANCE
     Dosage: UNK
     Route: 048
  7. SKENAN [Suspect]
     Active Substance: MORPHINE SULFATE
     Indication: GAIT DISTURBANCE
     Dosage: 20 MG, QD
     Route: 048
  8. ATORVASTATIN [Suspect]
     Active Substance: ATORVASTATIN
     Indication: PROPHYLAXIS
     Dosage: 40 MG, QD
     Route: 048
     Dates: start: 20191202, end: 20191206

REACTIONS (1)
  - Hypoglycaemia [Not Recovered/Not Resolved]

NARRATIVE: CASE EVENT DATE: 20191206
